FAERS Safety Report 7385298-2 (Version None)
Quarter: 2011Q1

REPORT INFORMATION
  Report Type: 
  Country: None (occurrence: None)
  Receive Date: 20110330
  Receipt Date: 20100512
  Transmission Date: 20110831
  Serious: No
  Sender: FDA-Public Use
  Company Number: US-MYLANLABS-2010S1008633

PATIENT

DRUGS (1)
  1. EMSAM [Suspect]

REACTIONS (2)
  - IRRITABILITY [None]
  - AGITATION [None]
